FAERS Safety Report 14128849 (Version 2)
Quarter: 2018Q2

REPORT INFORMATION
  Report Type: Spontaneous
  Country: US (occurrence: US)
  Receive Date: 20171026
  Receipt Date: 20180424
  Transmission Date: 20180711
  Serious: Yes (Death)
  Sender: FDA-Public Use
  Company Number: US-PFIZER INC-2017458202

PATIENT
  Age: 71 Year
  Sex: Female
  Weight: 59 kg

DRUGS (3)
  1. LETROZOLE. [Suspect]
     Active Substance: LETROZOLE
     Indication: HORMONE SUPPRESSION THERAPY
     Dosage: 2.5 MG, ONCE DAILY
     Route: 048
  2. IBRANCE [Suspect]
     Active Substance: PALBOCICLIB
     Indication: BREAST CANCER METASTATIC
     Dosage: 125 MG, ONCE DAILY
     Route: 048
  3. FASLODEX [Suspect]
     Active Substance: FULVESTRANT
     Indication: HORMONE SUPPRESSION THERAPY
     Dosage: UNK

REACTIONS (2)
  - Neoplasm progression [Fatal]
  - Pneumonia [Fatal]
